FAERS Safety Report 4329604-1 (Version None)
Quarter: 2004Q2

REPORT INFORMATION
  Report Type: 
  Country: None (occurrence: None)
  Receive Date: 20040401
  Receipt Date: 20040323
  Transmission Date: 20050107
  Serious: Yes (Hospitalization)
  Sender: FDA-Public Use
  Company Number: BR-ROCHE-362491

PATIENT
  Age: 24 Year
  Sex: Female
  Weight: 52 kg

DRUGS (9)
  1. DACLIZUMAB [Suspect]
     Route: 042
     Dates: start: 20031110, end: 20031110
  2. DACLIZUMAB [Suspect]
     Route: 042
     Dates: start: 20031125, end: 20040106
  3. MYCOPHENOLATE MOFETIL [Suspect]
     Route: 048
     Dates: start: 20031110, end: 20040315
  4. MYCOPHENOLATE MOFETIL [Suspect]
     Route: 048
     Dates: start: 20040317
  5. TACROLIMUS [Suspect]
     Route: 048
     Dates: start: 20031110, end: 20040315
  6. TACROLIMUS [Suspect]
     Route: 048
     Dates: start: 20040317
  7. PREDNISONE [Suspect]
     Route: 048
     Dates: start: 20031110
  8. RANITIDINE [Concomitant]
     Route: 048
     Dates: start: 20031110
  9. SULPHAMETHOXAZOLE [Concomitant]
     Route: 048
     Dates: start: 20031110

REACTIONS (5)
  - ABDOMINAL PAIN [None]
  - ENTEROCOCCAL BACTERAEMIA [None]
  - HYPOTENSION [None]
  - SEPSIS [None]
  - SOMNOLENCE [None]
